FAERS Safety Report 10949552 (Version 2)
Quarter: 2015Q2

REPORT INFORMATION
  Report Type: Spontaneous
  Country: IT (occurrence: IT)
  Receive Date: 20150324
  Receipt Date: 20150406
  Transmission Date: 20150821
  Serious: Yes (Life-Threatening, Hospitalization)
  Sender: FDA-Public Use
  Company Number: IT-ACTAVIS-2015-05635

PATIENT
  Age: 40 Year
  Sex: Female
  Weight: 67 kg

DRUGS (8)
  1. PACLITAXEL ACTAVIS [Suspect]
     Active Substance: PACLITAXEL
     Indication: BREAST CANCER
     Dosage: 260 MG, CYCLICAL
     Route: 042
     Dates: start: 20150130, end: 20150130
  2. HERCEPTIN [Suspect]
     Active Substance: TRASTUZUMAB
     Indication: BREAST CANCER
     Dosage: 530 MG, CYCLICAL
     Route: 042
     Dates: start: 20150130, end: 20150130
  3. CHLORPHENAMINE MALEATE [Concomitant]
     Active Substance: CHLORPHENIRAMINE MALEATE
     Indication: ALLERGY PROPHYLAXIS
     Dosage: 10 MG, UNKNOWN
     Route: 042
     Dates: start: 20150130, end: 20150130
  4. ADRIBLASTINA [Suspect]
     Active Substance: DOXORUBICIN HYDROCHLORIDE
     Indication: BREAST CANCER
     Dosage: 105 MG, CYCLICAL
     Route: 042
     Dates: start: 20150130, end: 20150130
  5. LORAZEPAM. [Concomitant]
     Active Substance: LORAZEPAM
     Indication: PROPHYLAXIS OF NAUSEA AND VOMITING
     Dosage: 1 MG, UNKNOWN
     Route: 048
     Dates: start: 20150130, end: 20150130
  6. PALONOSETRON HYDROCHLORIDE [Concomitant]
     Active Substance: PALONOSETRON HYDROCHLORIDE
     Indication: PROPHYLAXIS OF NAUSEA AND VOMITING
     Dosage: 25 ?G, UNKNOWN
     Route: 042
     Dates: start: 20150130, end: 20150130
  7. DESAMETASONE FOSF                  /00016002/ [Concomitant]
     Indication: ALLERGY PROPHYLAXIS
     Dosage: 20 MG, UNKNOWN
     Route: 042
     Dates: start: 20150130, end: 20150130
  8. APREPITANT. [Concomitant]
     Active Substance: APREPITANT
     Indication: PROPHYLAXIS OF NAUSEA AND VOMITING
     Dosage: 125 MG, UNKNOWN
     Route: 048
     Dates: start: 20150130, end: 20150130

REACTIONS (2)
  - Necrotising fasciitis [Recovered/Resolved with Sequelae]
  - Sepsis [Recovered/Resolved with Sequelae]

NARRATIVE: CASE EVENT DATE: 20150209
